FAERS Safety Report 7482903-7 (Version None)
Quarter: 2011Q2

REPORT INFORMATION
  Report Type: 
  Country: None (occurrence: None)
  Receive Date: 20110516
  Receipt Date: 20110511
  Transmission Date: 20111010
  Serious: Yes (Other)
  Sender: FDA-Public Use
  Company Number: US-PFIZER INC-2011102144

PATIENT
  Sex: Female
  Weight: 95.238 kg

DRUGS (3)
  1. LYRICA [Suspect]
     Indication: PAIN
  2. COUMADIN [Concomitant]
     Dosage: UNK
  3. LYRICA [Suspect]
     Indication: NEURALGIA
     Dosage: 25 MG, 2X/DAY
     Route: 048

REACTIONS (1)
  - HEAD INJURY [None]
